FAERS Safety Report 17049206 (Version 1)
Quarter: 2019Q4

REPORT INFORMATION
  Report Type: Spontaneous
  Country: US (occurrence: US)
  Receive Date: 20191021
  Receipt Date: 20191021
  Transmission Date: 20200122
  Serious: Yes (Other)
  Sender: FDA-Public Use
  Company Number: None

PATIENT
  Age: 73 Year
  Sex: Female
  Weight: 65.77 kg

DRUGS (2)
  1. JOY ORGANICS CBD OIL 500MG [Suspect]
     Active Substance: CANNABIDIOL\HERBALS
     Indication: INSOMNIA
     Dates: start: 20191010, end: 20191013
  2. JOY ORGANICS CBD OIL 500MG [Suspect]
     Active Substance: CANNABIDIOL\HERBALS
     Indication: ARTHRALGIA
     Dates: start: 20191010, end: 20191013

REACTIONS (3)
  - Diarrhoea [None]
  - Flatulence [None]
  - Nausea [None]

NARRATIVE: CASE EVENT DATE: 20191013
